FAERS Safety Report 12630100 (Version 2)
Quarter: 2017Q4

REPORT INFORMATION
  Report Type: Report from Study
  Country: JP (occurrence: JP)
  Receive Date: 20160808
  Receipt Date: 20171218
  Transmission Date: 20180320
  Serious: Yes (Hospitalization, Other)
  Sender: FDA-Public Use
  Company Number: JP-BRISTOL-MYERS SQUIBB COMPANY-BMS-2015-017015

PATIENT
  Age: 47 Year
  Sex: Female
  Weight: 49 kg

DRUGS (9)
  1. LYRICA [Concomitant]
     Active Substance: PREGABALIN
     Indication: NEURALGIA
     Dosage: 75 MG, SINGLE
     Route: 048
     Dates: start: 20140711, end: 20151209
  2. MAGLAX [Concomitant]
     Active Substance: MAGNESIUM OXIDE
     Indication: CONSTIPATION
     Dosage: 990 MG, SINGLE
     Route: 048
     Dates: start: 20140821
  3. LANSOPRAZOLE. [Concomitant]
     Active Substance: LANSOPRAZOLE
     Indication: PROPHYLAXIS
     Dosage: 15 MG, SINGLE
     Route: 048
  4. FLUVOXAMINE MALEATE. [Concomitant]
     Active Substance: FLUVOXAMINE MALEATE
     Indication: CEREBROVASCULAR ACCIDENT
     Route: 065
  5. LYRICA [Concomitant]
     Active Substance: PREGABALIN
     Indication: DYSAESTHESIA
     Route: 065
  6. FLUVOXAMINE MALEATE. [Concomitant]
     Active Substance: FLUVOXAMINE MALEATE
     Indication: DEPRESSION
     Dosage: 50 MG, SINGLE
     Route: 048
     Dates: start: 20140718
  7. APIXABAN [Suspect]
     Active Substance: APIXABAN
     Indication: CEREBROVASCULAR ACCIDENT PROPHYLAXIS
     Dosage: 5 MG, BID
     Route: 048
     Dates: start: 20140614
  8. MEXITIL [Concomitant]
     Active Substance: MEXILETINE HYDROCHLORIDE
     Indication: SINUS NODE DYSFUNCTION
     Dosage: 300 MG, SINGLE
     Route: 048
     Dates: end: 20160217
  9. ANCARON [Concomitant]
     Active Substance: AMIODARONE HYDROCHLORIDE
     Indication: SINUS NODE DYSFUNCTION
     Dosage: 200 MG, SINGLE
     Route: 048

REACTIONS (3)
  - Femoral neck fracture [Recovered/Resolved]
  - Orthopaedic procedure [Unknown]
  - Nipple exudate bloody [Recovered/Resolved]

NARRATIVE: CASE EVENT DATE: 20140827
